FAERS Safety Report 9827732 (Version 1)
Quarter: 2013Q4

REPORT INFORMATION
  Report Type: Spontaneous
  Country: US (occurrence: None)
  Receive Date: 20131120
  Receipt Date: 20131120
  Transmission Date: 20140711
  Serious: No
  Sender: FDA-Public Use
  Company Number: 1000047483

PATIENT
  Age: 42 Year
  Sex: Female

DRUGS (4)
  1. VIIBRYD (VLAZODONE HYDROCHLORIDE) (10 MILLIGRAM, TABLETS) [Suspect]
     Indication: DEPRESSION
     Dosage: 1 IN 1 D
     Route: 048
     Dates: start: 201301, end: 2013
  2. VIIBRYD (VLAZODONE HYDROCHLORIDE) (10 MILLIGRAM, TABLETS) [Suspect]
     Indication: ANXIETY
     Dosage: 1 IN 1 D
     Route: 048
     Dates: start: 201301, end: 2013
  3. ATIVAN (LORAZEPAM) (LORAZEPAM) [Concomitant]
  4. ZOLOFT (SERTRALINE HYDROCHLORIDE) (SERTRALINE HYDROCHLORIDE) [Concomitant]

REACTIONS (3)
  - Vision blurred [None]
  - Dry eye [None]
  - Corneal abrasion [None]
